FAERS Safety Report 15493352 (Version 2)
Quarter: 2018Q4

REPORT INFORMATION
  Report Type: Report from Study
  Country: US (occurrence: US)
  Receive Date: 20181012
  Receipt Date: 20181019
  Transmission Date: 20190205
  Serious: Yes (Death)
  Sender: FDA-Public Use
  Company Number: US-TAIHO ONCOLOGY  INC-EU-2018-01652

PATIENT
  Age: 69 Year
  Sex: Male
  Weight: 89.73 kg

DRUGS (12)
  1. METFORMIN [Concomitant]
     Active Substance: METFORMIN HYDROCHLORIDE
     Dates: start: 20180521
  2. IRON [Concomitant]
     Active Substance: IRON
     Dosage: 100, PLUS
  3. LONSURF [Suspect]
     Active Substance: TIPIRACIL HYDROCHLORIDE\TRIFLURIDINE
     Indication: COLON CANCER
     Dosage: CURRENT CYCLE UNKNOWN
     Route: 048
     Dates: start: 20180522, end: 2018
  4. METOPROLOL TAR [Concomitant]
     Active Substance: METOPROLOL TARTRATE
     Dates: start: 20180521
  5. ELIQUIS [Concomitant]
     Active Substance: APIXABAN
     Dates: start: 20180521
  6. AMIODARONE [Concomitant]
     Active Substance: AMIODARONE
     Dates: start: 20180521
  7. HUMALOG MIX [Concomitant]
     Active Substance: INSULIN LISPRO
     Dosage: 50/50
     Dates: start: 20180521
  8. PANTOPRAZOLE [Concomitant]
     Active Substance: PANTOPRAZOLE
     Dates: start: 20180521
  9. VIT B12/FA [Concomitant]
     Dates: start: 20180521
  10. ASPIRIN. [Concomitant]
     Active Substance: ASPIRIN
     Dosage: EC
     Dates: start: 20180521
  11. ATORVASTATIN [Concomitant]
     Active Substance: ATORVASTATIN
     Dates: start: 20180521
  12. LANTUS [Concomitant]
     Active Substance: INSULIN GLARGINE
     Dosage: 100/ML
     Dates: start: 20180521

REACTIONS (1)
  - Death [Fatal]

NARRATIVE: CASE EVENT DATE: 20180926
